FAERS Safety Report 12905736 (Version 3)
Quarter: 2017Q1

REPORT INFORMATION
  Report Type: Spontaneous
  Country: IR (occurrence: IR)
  Receive Date: 20161103
  Receipt Date: 20170301
  Transmission Date: 20170428
  Serious: Yes (Death, Life-Threatening, Hospitalization, Other)
  Sender: FDA-Public Use
  Company Number: IR-ACCORD-045366

PATIENT
  Age: 17 Year
  Sex: Female

DRUGS (1)
  1. TRAMADOL/TRAMADOL HYDROCHLORIDE [Suspect]
     Active Substance: TRAMADOL HYDROCHLORIDE

REACTIONS (6)
  - Overdose [Fatal]
  - Intentional overdose [None]
  - Cardio-respiratory arrest [None]
  - Cardiac arrest [Fatal]
  - Generalised tonic-clonic seizure [Recovering/Resolving]
  - Suicide attempt [Unknown]
